FAERS Safety Report 12692950 (Version 9)
Quarter: 2016Q4

REPORT INFORMATION
  Report Type: Report from Study
  Country: CA (occurrence: CA)
  Receive Date: 20160829
  Receipt Date: 20161102
  Transmission Date: 20170207
  Serious: Yes (Other)
  Sender: FDA-Public Use
  Company Number: PHHY2016CA112377

PATIENT
  Sex: Male

DRUGS (11)
  1. DICLOFENAC [Suspect]
     Active Substance: DICLOFENAC
     Indication: PRODUCT USED FOR UNKNOWN INDICATION
     Route: 065
  2. PREGABALIN. [Concomitant]
     Active Substance: PREGABALIN
     Indication: PRODUCT USED FOR UNKNOWN INDICATION
     Route: 065
  3. PREDNISONE. [Concomitant]
     Active Substance: PREDNISONE
     Indication: PRODUCT USED FOR UNKNOWN INDICATION
     Dosage: 5 MG, QW
     Route: 065
     Dates: start: 201509
  4. METFORMIN [Concomitant]
     Active Substance: METFORMIN HYDROCHLORIDE
     Indication: PRODUCT USED FOR UNKNOWN INDICATION
     Route: 065
  5. COSENTYX [Suspect]
     Active Substance: SECUKINUMAB
     Indication: PSORIATIC ARTHROPATHY
     Dosage: 300 MG, QMO
     Route: 058
     Dates: start: 20160706
  6. CORTISONE [Concomitant]
     Active Substance: CORTISONE\HYDROCORTISONE
     Indication: PRODUCT USED FOR UNKNOWN INDICATION
     Dosage: DAILY
     Route: 065
  7. METHOTREXATE. [Concomitant]
     Active Substance: METHOTREXATE
     Indication: PRODUCT USED FOR UNKNOWN INDICATION
     Dosage: 25 UNK, QW
     Route: 065
     Dates: start: 201304
  8. SULFASALAZINE. [Concomitant]
     Active Substance: SULFASALAZINE
     Indication: PRODUCT USED FOR UNKNOWN INDICATION
     Dosage: 1.5 G, QW
     Route: 065
     Dates: start: 201301
  9. PANTOPRAZOLE [Concomitant]
     Active Substance: PANTOPRAZOLE SODIUM
     Indication: PRODUCT USED FOR UNKNOWN INDICATION
     Route: 065
  10. SIMPONI [Concomitant]
     Active Substance: GOLIMUMAB
     Indication: PRODUCT USED FOR UNKNOWN INDICATION
     Route: 065
  11. HUMIRA [Concomitant]
     Active Substance: ADALIMUMAB
     Indication: PRODUCT USED FOR UNKNOWN INDICATION
     Route: 065

REACTIONS (26)
  - Wound [Recovered/Resolved]
  - Ocular hyperaemia [Recovering/Resolving]
  - Skin candida [Recovering/Resolving]
  - Night sweats [Unknown]
  - Dyspnoea [Recovering/Resolving]
  - Oral herpes [Unknown]
  - Asthma [Recovering/Resolving]
  - Erythema [Unknown]
  - Diabetes mellitus [Recovering/Resolving]
  - Aphthous ulcer [Recovering/Resolving]
  - Eye pruritus [Recovering/Resolving]
  - Tongue discomfort [Unknown]
  - Hypersensitivity [Unknown]
  - Penis disorder [Unknown]
  - Purulent discharge [Recovering/Resolving]
  - Tongue discolouration [Unknown]
  - Incorrect dose administered [Unknown]
  - Balanitis candida [Recovering/Resolving]
  - Pruritus [Unknown]
  - Oral infection [Recovering/Resolving]
  - Feeling abnormal [Unknown]
  - Blood glucose increased [Unknown]
  - Urinary tract infection [Unknown]
  - Oropharyngeal pain [Recovering/Resolving]
  - Candida infection [Not Recovered/Not Resolved]
  - Oral candidiasis [Recovering/Resolving]

NARRATIVE: CASE EVENT DATE: 2016
